FAERS Safety Report 5645916-3 (Version None)
Quarter: 2008Q1

REPORT INFORMATION
  Report Type: 
  Country: None (occurrence: None)
  Receive Date: 20080229
  Receipt Date: 20080222
  Transmission Date: 20080703
  Serious: Yes (Hospitalization)
  Sender: FDA-Public Use
  Company Number: JP-GENENTECH-251343

PATIENT
  Sex: Male
  Weight: 49.7 kg

DRUGS (17)
  1. RITUXAN [Suspect]
     Indication: NON-HODGKIN'S LYMPHOMA
     Dosage: 540 MG, UNK
     Route: 042
     Dates: start: 20070829
  2. RITUXAN [Suspect]
     Dosage: 540 MG, Q3W
     Route: 042
  3. ADRIACIN [Suspect]
     Indication: NON-HODGKIN'S LYMPHOMA
     Dosage: 70 MG, UNK
     Route: 042
     Dates: start: 20070829
  4. ADRIACIN [Suspect]
     Dosage: 70 MG, Q3W
     Route: 042
  5. ENDOXAN [Suspect]
     Indication: NON-HODGKIN'S LYMPHOMA
     Dosage: 1000 MG, UNK
     Route: 042
     Dates: start: 20070829
  6. ENDOXAN [Suspect]
     Dosage: 1000 MG, Q3W
     Route: 042
  7. ONCOVIN [Suspect]
     Indication: NON-HODGKIN'S LYMPHOMA
     Dosage: 2 MG, UNK
     Route: 042
     Dates: start: 20070829
  8. ONCOVIN [Suspect]
     Dosage: 2 MG, Q3W
     Route: 042
  9. PREDONINE [Suspect]
     Indication: NON-HODGKIN'S LYMPHOMA
     Dosage: 100 MG, UNK
     Route: 048
     Dates: start: 20070829, end: 20070902
  10. AMARYL [Concomitant]
     Indication: DIABETES MELLITUS
     Dosage: 3 TABLET, UNK
     Route: 048
     Dates: start: 20070601
  11. FAMOTIDINE [Concomitant]
     Indication: GASTRIC ULCER
     Dosage: 2 TABLET, UNK
     Route: 048
     Dates: start: 20070601, end: 20070817
  12. ALDIOXA [Concomitant]
     Indication: GASTRIC ULCER
     Dosage: 2 TABLET, UNK
     Route: 048
     Dates: start: 20070601, end: 20070817
  13. GASTROM [Concomitant]
     Indication: GASTRIC ULCER
     Dates: start: 20070601, end: 20070817
  14. TAKEPRON [Concomitant]
     Indication: GASTRIC ULCER
     Dosage: 15 MG, UNK
     Dates: start: 20070601
  15. BAKTAR [Concomitant]
     Indication: PROPHYLAXIS
     Dosage: 1 G, X2
     Route: 048
  16. CALONAL [Concomitant]
     Indication: PREMEDICATION
     Dosage: 400 MG, UNK
     Route: 048
     Dates: start: 20070829
  17. POLARAMINE [Concomitant]
     Indication: PREMEDICATION
     Dosage: 2 MG, UNK
     Route: 048
     Dates: start: 20070829

REACTIONS (2)
  - HEPATITIS C [None]
  - LIVER DISORDER [None]
